FAERS Safety Report 8972194 (Version 1)
Quarter: 2012Q4

REPORT INFORMATION
  Report Type: 
  Country: US (occurrence: US)
  Receive Date: 20121219
  Receipt Date: 20121219
  Transmission Date: 20130627
  Serious: No
  Sender: FDA-Public Use
  Company Number: US-MYLANLABS-2012S1005738

PATIENT
  Age: 63 Year
  Sex: Male
  Weight: 90.72 kg

DRUGS (8)
  1. LEVETIRACETAM [Suspect]
     Indication: PARTIAL SEIZURES
     Dates: end: 201112
  2. LEVETIRACETAM [Suspect]
     Indication: PARTIAL SEIZURES
     Dates: start: 201112
  3. PHENYTOIN [Concomitant]
     Indication: CONVULSION
     Dates: start: 2002
  4. PRAVASTATIN [Concomitant]
     Indication: BLOOD CHOLESTEROL INCREASED
  5. ASA [Concomitant]
  6. LISINOPRIL [Concomitant]
     Indication: BLOOD PRESSURE INCREASED
  7. OMEPRAZOLE [Concomitant]
     Indication: GASTROOESOPHAGEAL REFLUX DISEASE
  8. AMLODIPINE [Concomitant]
     Indication: BLOOD PRESSURE INCREASED

REACTIONS (6)
  - Neuropathy peripheral [Not Recovered/Not Resolved]
  - Insomnia [Not Recovered/Not Resolved]
  - Depression [Not Recovered/Not Resolved]
  - Anxiety [Not Recovered/Not Resolved]
  - Agitation [Not Recovered/Not Resolved]
  - Restlessness [Not Recovered/Not Resolved]
